FAERS Safety Report 17918901 (Version 1)
Quarter: 2020Q2

REPORT INFORMATION
  Report Type: Spontaneous
  Country: US (occurrence: US)
  Receive Date: 20200619
  Receipt Date: 20200619
  Transmission Date: 20200714
  Serious: No
  Sender: FDA-Public Use
  Company Number: US-PFIZER INC-2020237803

PATIENT
  Age: 27 Year
  Sex: Female
  Weight: 81.65 kg

DRUGS (1)
  1. PRISTIQ EXTENDED-RELEASE [Suspect]
     Active Substance: DESVENLAFAXINE SUCCINATE
     Indication: GENERALISED ANXIETY DISORDER
     Dosage: UNK, DAILY (DOSE UNKNOWN; TAKES TWO DAILY BY MOUTH)
     Route: 048

REACTIONS (3)
  - Off label use [Unknown]
  - Feeling abnormal [Unknown]
  - Product use in unapproved indication [Unknown]
